FAERS Safety Report 18710627 (Version 1)
Quarter: 2021Q1

REPORT INFORMATION
  Report Type: Other
  Country: IT (occurrence: IT)
  Receive Date: 20210107
  Receipt Date: 20210107
  Transmission Date: 20210419
  Serious: Yes (Other)
  Sender: FDA-Public Use
  Company Number: IT-INNOGENIX, LLC-2104047

PATIENT
  Age: 45 Year
  Sex: Male

DRUGS (1)
  1. METRONIDAZOLE. [Suspect]
     Active Substance: METRONIDAZOLE
     Indication: DYSBIOSIS
     Route: 048

REACTIONS (3)
  - Rash erythematous [Recovered/Resolved]
  - Type IV hypersensitivity reaction [Unknown]
  - Angioedema [Recovered/Resolved]
